FAERS Safety Report 5886656-5 (Version None)
Quarter: 2008Q3

REPORT INFORMATION
  Report Type: 
  Country: None (occurrence: None)
  Receive Date: 20080917
  Receipt Date: 20080909
  Transmission Date: 20090109
  Serious: Yes (Other)
  Sender: FDA-Public Use
  Company Number: PHHY2008JP12439

PATIENT
  Age: 30 Year
  Sex: Male

DRUGS (5)
  1. TOFRANIL [Suspect]
     Indication: DEPRESSION
     Dosage: 50 MG/DAY
     Route: 048
     Dates: start: 20080501, end: 20080701
  2. PAXIL [Suspect]
     Dosage: 30 MG/DAY
     Route: 048
     Dates: end: 20080601
  3. ZOLOFT [Suspect]
     Dosage: 100 MG/DAY
     Route: 048
     Dates: start: 20070601, end: 20080601
  4. LUVOX [Suspect]
     Dosage: UNK
     Route: 048
     Dates: start: 20080201
  5. SSRI [Concomitant]

REACTIONS (6)
  - HYPERHIDROSIS [None]
  - INITIAL INSOMNIA [None]
  - MYOCLONUS [None]
  - SEROTONIN SYNDROME [None]
  - TACHYCARDIA [None]
  - TREMOR [None]
